FAERS Safety Report 9302086 (Version 2)
Quarter: 2013Q2

REPORT INFORMATION
  Report Type: Spontaneous
  Country: AU (occurrence: AU)
  Receive Date: 20130521
  Receipt Date: 20130605
  Transmission Date: 20140414
  Serious: Yes (Death, Other)
  Sender: FDA-Public Use
  Company Number: AU-B.I. PHARMACEUTICALS,INC./RIDGEFIELD-2013-AU-00599AU

PATIENT
  Age: 75 Year
  Sex: Male
  Weight: 94 kg

DRUGS (3)
  1. PRADAXA [Suspect]
     Indication: CEREBROVASCULAR ACCIDENT PROPHYLAXIS
     Dosage: 220 MG
     Dates: start: 20110809, end: 20130303
  2. PRADAXA [Suspect]
     Indication: ATRIAL FIBRILLATION
  3. INDERAL [Concomitant]
     Dosage: 80 MG

REACTIONS (4)
  - Oesophageal carcinoma [Fatal]
  - Metastases to liver [Unknown]
  - Hypovolaemia [Unknown]
  - Renal impairment [Unknown]
